FAERS Safety Report 7412609-1 (Version None)
Quarter: 2011Q2

REPORT INFORMATION
  Report Type: 
  Country: None (occurrence: None)
  Receive Date: 20110413
  Receipt Date: 20110405
  Transmission Date: 20111010
  Serious: Yes (Other)
  Sender: FDA-Public Use
  Company Number: B0440134A

PATIENT
  Age: 36 Year
  Sex: Male
  Weight: 77 kg

DRUGS (2)
  1. NICOTINE PATCH [Suspect]
     Dosage: 21MG PER DAY
     Route: 062
     Dates: start: 20060720, end: 20060727
  2. VENTOLIN [Concomitant]
     Indication: ASTHMA
     Route: 055
     Dates: start: 19860101

REACTIONS (2)
  - WHEEZING [None]
  - DYSPNOEA [None]
